FAERS Safety Report 18173281 (Version 1)
Quarter: 2020Q3

REPORT INFORMATION
  Report Type: Report from Study
  Country: US (occurrence: US)
  Receive Date: 20200819
  Receipt Date: 20200819
  Transmission Date: 20201103
  Serious: Yes (Death, Hospitalization)
  Sender: FDA-Public Use
  Company Number: US-GILEAD-2019-0437504

PATIENT
  Age: 61 Year
  Sex: Female
  Weight: 65.5 kg

DRUGS (40)
  1. PEPCID [Concomitant]
     Active Substance: FAMOTIDINE
  2. MVI [VITAMINS NOS] [Concomitant]
  3. FERROUS SULFATE. [Concomitant]
     Active Substance: FERROUS SULFATE
     Dosage: 325,MG,DAILY
     Dates: start: 20151229, end: 20200111
  4. POTASSIUM CITRATE. [Concomitant]
     Active Substance: POTASSIUM CITRATE
     Dosage: 10,OTHER,TWICE DAILY
     Dates: start: 20191116, end: 20200111
  5. HIBICLENS [Concomitant]
     Active Substance: CHLORHEXIDINE GLUCONATE
  6. LIPITOR [Concomitant]
     Active Substance: ATORVASTATIN CALCIUM
  7. DIPROLENE [Concomitant]
     Active Substance: BETAMETHASONE DIPROPIONATE
  8. LACTATED RINGERS SOLUTION [Concomitant]
     Active Substance: CALCIUM CHLORIDE\POTASSIUM CHLORIDE\SODIUM CHLORIDE\SODIUM LACTATE
  9. SYNTHROID [Concomitant]
     Active Substance: LEVOTHYROXINE SODIUM
  10. ZOFRAN [Concomitant]
     Active Substance: ONDANSETRON HYDROCHLORIDE
  11. PRILOSEC [Concomitant]
     Active Substance: OMEPRAZOLE MAGNESIUM
  12. LEVOTHYROXINE. [Concomitant]
     Active Substance: LEVOTHYROXINE
     Dosage: 88,OTHER,DAILY
     Dates: start: 20151229, end: 20200111
  13. KTE?X19 [Suspect]
     Active Substance: AXICABTAGENE CILOLEUCEL
     Indication: CHRONIC LYMPHOCYTIC LEUKAEMIA
     Dosage: 68 ML, ONCE
     Route: 042
     Dates: start: 20191023, end: 20191023
  14. MESNA. [Suspect]
     Active Substance: MESNA
     Indication: PROPHYLAXIS
     Dosage: 125 MG/M2, TID
     Route: 042
     Dates: start: 20191018, end: 20191021
  15. CHLORHEXIDINE GLUCONATE. [Concomitant]
     Active Substance: CHLORHEXIDINE GLUCONATE
  16. KEPPRA [Concomitant]
     Active Substance: LEVETIRACETAM
  17. MAGNESIUM SULFATE. [Concomitant]
     Active Substance: MAGNESIUM SULFATE
  18. FLUDARABINE [Suspect]
     Active Substance: FLUDARABINE PHOSPHATE
     Indication: BONE MARROW CONDITIONING REGIMEN
     Dosage: 30 MG/M2, QD
     Route: 042
     Dates: start: 20191018, end: 20191020
  19. PAXIL [Concomitant]
     Active Substance: PAROXETINE HYDROCHLORIDE
     Dosage: UNK
     Dates: start: 20151211, end: 20200111
  20. TYLENOL [Concomitant]
     Active Substance: ACETAMINOPHEN
  21. ATIVAN [Concomitant]
     Active Substance: LORAZEPAM
  22. SODIUM CHLORIDE. [Concomitant]
     Active Substance: SODIUM CHLORIDE
  23. ATORVASTATIN [Concomitant]
     Active Substance: ATORVASTATIN
     Dosage: 40,MG,DAILY
     Dates: start: 20151229, end: 20200111
  24. TRIAMTERENE/HYDROCHLOROTHIAZIDE [Concomitant]
     Active Substance: HYDROCHLOROTHIAZIDE\TRIAMTERENE
     Dosage: UNK
     Dates: start: 20151211, end: 20200111
  25. BENADRYL [Concomitant]
     Active Substance: DIPHENHYDRAMINE HYDROCHLORIDE
  26. ZYRTEC [Concomitant]
     Active Substance: CETIRIZINE HYDROCHLORIDE
  27. UROCIT?K [Concomitant]
     Active Substance: POTASSIUM CITRATE
  28. COLACE [Concomitant]
     Active Substance: DOCUSATE SODIUM
  29. SENOKOT [Concomitant]
     Active Substance: SENNOSIDES
  30. ALLOPURINOL. [Concomitant]
     Active Substance: ALLOPURINOL
     Dosage: UNK
     Dates: start: 20120829, end: 20200111
  31. ZOVIRAX [ACICLOVIR SODIUM] [Concomitant]
     Dosage: UNK
     Dates: start: 20090813, end: 20200111
  32. NYSTATIN. [Concomitant]
     Active Substance: NYSTATIN
  33. ZYLOPRIM [Concomitant]
     Active Substance: ALLOPURINOL
     Dosage: UNK
     Dates: start: 20120829
  34. CYCLOPHOSPHAMIDE. [Suspect]
     Active Substance: CYCLOPHOSPHAMIDE
     Indication: BONE MARROW CONDITIONING REGIMEN
     Dosage: 500 MG/M2, QD
     Route: 042
     Dates: start: 20191018, end: 20191020
  35. D5LRS [Concomitant]
  36. MEPRON [Concomitant]
     Active Substance: ATOVAQUONE
  37. PERIDEX [DEXAMETHASONE] [Concomitant]
     Active Substance: DEXAMETHASONE
  38. NEXIUM I.V. [Concomitant]
     Active Substance: ESOMEPRAZOLE SODIUM
     Dosage: 20,MG,DAILY
     Dates: start: 20191103, end: 20200111
  39. MAG?OX [Concomitant]
     Active Substance: MAGNESIUM OXIDE
  40. POTASSIUM CHLORIDE. [Concomitant]
     Active Substance: POTASSIUM CHLORIDE
     Dosage: 20,OTHER,AS NECESSARY
     Dates: start: 20191018, end: 20200111

REACTIONS (12)
  - Systemic candida [Not Recovered/Not Resolved]
  - Failure to thrive [Recovered/Resolved]
  - Hypoxia [Recovered/Resolved]
  - Pyrexia [Recovered/Resolved]
  - Cytokine release syndrome [Recovered/Resolved]
  - Malaise [Recovered/Resolved]
  - Hypotension [Not Recovered/Not Resolved]
  - Fatigue [Recovered/Resolved]
  - Chronic lymphocytic leukaemia [Fatal]
  - Abdominal pain [Not Recovered/Not Resolved]
  - Sepsis [Not Recovered/Not Resolved]
  - Nausea [Recovered/Resolved]

NARRATIVE: CASE EVENT DATE: 20191111
